FAERS Safety Report 4863033-7 (Version None)
Quarter: 2005Q4

REPORT INFORMATION
  Report Type: 
  Country: None (occurrence: None)
  Receive Date: 20051221
  Receipt Date: 20051215
  Transmission Date: 20060501
  Serious: Yes (Other)
  Sender: FDA-Public Use
  Company Number: GB-MERCK-0512GBR00083

PATIENT
  Age: 66 Year
  Sex: Male
  Weight: 127 kg

DRUGS (5)
  1. ZOCOR [Suspect]
     Indication: BLOOD CHOLESTEROL INCREASED
     Route: 048
  2. ZOCOR [Suspect]
     Route: 048
     Dates: start: 20040101
  3. DIGOXIN [Concomitant]
     Route: 048
     Dates: start: 19990101
  4. LISINOPRIL [Concomitant]
     Route: 048
  5. WARFARIN [Concomitant]
     Route: 048

REACTIONS (1)
  - AMNESIA [None]
